FAERS Safety Report 5163650-3 (Version None)
Quarter: 2006Q4

REPORT INFORMATION
  Report Type: 
  Country: None (occurrence: None)
  Receive Date: 20061127
  Receipt Date: 20061127
  Transmission Date: 20070319
  Serious: Yes (Hospitalization)
  Sender: FDA-Public Use
  Company Number: None

PATIENT
  Age: 54 Year
  Sex: Female

DRUGS (5)
  1. LITHIUM [Suspect]
     Dosage: 600 MG BID PO
     Route: 048
  2. MAXZIDE [Concomitant]
  3. AVANDIA [Concomitant]
  4. REGLAN [Concomitant]
  5. PROTONIX [Concomitant]

REACTIONS (6)
  - CONFUSIONAL STATE [None]
  - DEHYDRATION [None]
  - MENTAL STATUS CHANGES [None]
  - NERVOUS SYSTEM DISORDER [None]
  - PNEUMONIA ASPIRATION [None]
  - THERAPEUTIC AGENT TOXICITY [None]
